FAERS Safety Report 10061786 (Version 1)
Quarter: 2014Q2

REPORT INFORMATION
  Report Type: Spontaneous
  Country: IT (occurrence: IT)
  Receive Date: 20140407
  Receipt Date: 20140407
  Transmission Date: 20141212
  Serious: Yes (Other)
  Sender: FDA-Public Use
  Company Number: IT-BIOGENIDEC-2014BI031001

PATIENT
  Age: 46 Year
  Sex: Female
  Weight: 53 kg

DRUGS (4)
  1. AVONEX [Suspect]
     Indication: MULTIPLE SCLEROSIS
     Route: 030
  2. NIMESULIDE [Concomitant]
     Route: 048
  3. CREON [Concomitant]
     Route: 048
  4. CARNITINE [Concomitant]
     Route: 048

REACTIONS (8)
  - Amylase increased [Unknown]
  - Anti-thyroid antibody positive [Unknown]
  - Lipase increased [Unknown]
  - Migraine [Recovered/Resolved]
  - Limb discomfort [Recovered/Resolved]
  - Syncope [Recovered/Resolved]
  - Headache [Recovered/Resolved]
  - Hyperpyrexia [Recovered/Resolved]
